FAERS Safety Report 9220664 (Version 1)
Quarter: 2013Q2

REPORT INFORMATION
  Report Type: Spontaneous
  Country: US (occurrence: US)
  Receive Date: 20130409
  Receipt Date: 20130409
  Transmission Date: 20140414
  Serious: Yes (Life-Threatening, Other)
  Sender: FDA-Public Use
  Company Number: US-ASTRAZENECA-2013SE21792

PATIENT
  Sex: Female

DRUGS (2)
  1. QUETIAPINE FUMURATE [Suspect]
     Route: 048
  2. LAMICTAL [Suspect]
     Route: 065

REACTIONS (1)
  - Suicide attempt [Recovering/Resolving]
